FAERS Safety Report 20916465 (Version 1)
Quarter: 2022Q2

REPORT INFORMATION
  Report Type: Spontaneous
  Country: FR (occurrence: FR)
  Receive Date: 20220604
  Receipt Date: 20220604
  Transmission Date: 20220721
  Serious: Yes (Hospitalization)
  Sender: FDA-Public Use
  Company Number: None

PATIENT
  Age: 72 Year
  Sex: Female
  Weight: 86 kg

DRUGS (4)
  1. BISOPROLOL [Suspect]
     Active Substance: BISOPROLOL
     Indication: Cardiac failure
     Dosage: LC , BISOPROLOL (FUMARATE ACIDE DE) , UNIT DOSE : 2.5 MG , FREQUENCY TIME : 1 DAY
     Route: 048
  2. IRBESARTAN [Suspect]
     Active Substance: IRBESARTAN
     Indication: Hypertension
     Dosage: LC , UNIT DOSE : 300 MG , FREQUENCY TIME : 1 DAY
     Route: 048
     Dates: end: 20220209
  3. FUROSEMIDE [Suspect]
     Active Substance: FUROSEMIDE
     Indication: Cardiac failure
     Dosage: LC , UNIT DOSE : 500 MG , FREQUENCY TIME : 1 DAY
     Route: 048
  4. NICARDIPINE HYDROCHLORIDE [Suspect]
     Active Substance: NICARDIPINE HYDROCHLORIDE
     Indication: Hypertension
     Dosage: LC , UNIT DOSE : 100 MG , FREQUENCY TIME : 1 DAY
     Route: 048
     Dates: end: 20220209

REACTIONS (2)
  - Hyperkalaemia [Recovered/Resolved]
  - Hypotension [Recovering/Resolving]

NARRATIVE: CASE EVENT DATE: 20220201
